FAERS Safety Report 8971601 (Version 1)
Quarter: 2012Q4

REPORT INFORMATION
  Report Type: 
  Country: NL (occurrence: NL)
  Receive Date: 20121217
  Receipt Date: 20121217
  Transmission Date: 20130627
  Serious: Yes (Other)
  Sender: FDA-Public Use
  Company Number: NL-009507513-1212NLD005121

PATIENT
  Age: 53 Year
  Sex: Male
  Weight: 84 kg

DRUGS (7)
  1. ZOCOR [Suspect]
     Dosage: 10 mg, qd
     Route: 048
     Dates: start: 1999, end: 2011
  2. EZETROL [Suspect]
     Dosage: 10 mg, qd
     Route: 048
     Dates: start: 1999, end: 2011
  3. SIMVASTATIN [Suspect]
     Dosage: 5 mg, qd
     Route: 048
     Dates: start: 1999, end: 2011
  4. ROSUVASTATINE [Suspect]
     Dosage: 5 mg, qd
     Route: 048
     Dates: start: 1999, end: 2011
  5. LIPITOR [Suspect]
     Dosage: 10 mg, qd
     Route: 048
     Dates: start: 1999, end: 2011
  6. CRESTOR [Suspect]
     Dosage: 5 mg, qd
     Route: 048
     Dates: start: 1999, end: 2011
  7. BEZALIP [Suspect]
     Dosage: 400 mg, qd
     Route: 048
     Dates: start: 1999, end: 2011

REACTIONS (1)
  - Tendonitis [Recovered/Resolved]
